FAERS Safety Report 10313819 (Version 3)
Quarter: 2014Q4

REPORT INFORMATION
  Report Type: Spontaneous
  Country: US (occurrence: None)
  Receive Date: 20140716
  Receipt Date: 20141023
  Transmission Date: 20150528
  Serious: Yes (Other)
  Sender: FDA-Public Use
  Company Number: US-H14001-14-00206

PATIENT
  Age: 57 Year
  Sex: Male

DRUGS (5)
  1. INFUMORPH [Suspect]
     Active Substance: MORPHINE SULFATE
     Indication: PROCEDURAL PAIN
     Route: 037
  2. PRAVASTATIN [Concomitant]
     Active Substance: PRAVASTATIN\PRAVASTATIN SODIUM
  3. LISINOPRIL (LISINOPRIL) [Concomitant]
     Active Substance: LISINOPRIL
  4. BUPIVACAINE [Suspect]
     Active Substance: BUPIVACAINE
     Indication: PROCEDURAL PAIN
     Route: 037
     Dates: end: 201311
  5. METOPROLOL (METOPROLOL) [Concomitant]
     Active Substance: METOPROLOL

REACTIONS (10)
  - Granuloma [None]
  - Diarrhoea [None]
  - Drug withdrawal syndrome [None]
  - Nausea [None]
  - Vomiting [None]
  - CSF test abnormal [None]
  - Treatment noncompliance [None]
  - Device occlusion [None]
  - Device battery issue [None]
  - Unevaluable event [None]

NARRATIVE: CASE EVENT DATE: 20130815
